FAERS Safety Report 5817079-2 (Version None)
Quarter: 2008Q3

REPORT INFORMATION
  Report Type: 
  Country: None (occurrence: None)
  Receive Date: 20080722
  Receipt Date: 20080715
  Transmission Date: 20090109
  Serious: Yes (Other)
  Sender: FDA-Public Use
  Company Number: BE-BAYER-200820399GPV

PATIENT
  Age: 56 Year
  Sex: Female

DRUGS (1)
  1. ANGELIQ [Suspect]
     Indication: HORMONE REPLACEMENT THERAPY
     Dates: start: 20080529, end: 20080609

REACTIONS (1)
  - SYSTEMIC LUPUS ERYTHEMATOSUS [None]
